FAERS Safety Report 18634385 (Version 1)
Quarter: 2020Q4

REPORT INFORMATION
  Report Type: Spontaneous
  Country: TR (occurrence: TR)
  Receive Date: 20201218
  Receipt Date: 20201218
  Transmission Date: 20210114
  Serious: Yes (Other)
  Sender: FDA-Public Use
  Company Number: TR-MYLANLABS-2020M1103771

PATIENT
  Age: 3 Decade
  Sex: Male

DRUGS (9)
  1. ARIPIPRAZOLE. [Concomitant]
     Active Substance: ARIPIPRAZOLE
     Indication: SCHIZOPHRENIA
     Dosage: 400 MILLIGRAM, MONTHLY
     Route: 065
  2. CLOZAPINE. [Suspect]
     Active Substance: CLOZAPINE
     Indication: SCHIZOPHRENIA
     Dosage: 400 MILLIGRAM, QD, GRADUAL SWITCH FROM OLANZAPINE TO ORAL CLOZAPINE MONOTHERAPY ..
     Route: 048
  3. CLOZAPINE. [Suspect]
     Active Substance: CLOZAPINE
     Dosage: UNK, THERAPY CONTINUED IN COMBINATION WITH ARIPIPRAZOLE
     Route: 048
  4. RISPERIDONE. [Suspect]
     Active Substance: RISPERIDONE
     Indication: SCHIZOPHRENIA
     Dosage: 4 MILLIGRAM, QD
     Route: 048
  5. OLANZAPINE. [Suspect]
     Active Substance: OLANZAPINE
     Indication: SCHIZOPHRENIA
     Dosage: GRADUAL CROSS-SWITCH TO OLANZAPINE
     Route: 048
  6. RISPERIDONE. [Suspect]
     Active Substance: RISPERIDONE
     Dosage: 10 MILLIGRAM, QD, GRADUALLY INCREASED TO 10MG/D WITHIN A MONTH
     Route: 048
  7. CLOZAPINE. [Suspect]
     Active Substance: CLOZAPINE
     Dosage: 500 MILLIGRAM, QD, CLOZAPINE DOSAGE BEING TITRATED TO 500 MG/D 1 MONTH LATER, AND ..
     Route: 048
  8. OLANZAPINE. [Suspect]
     Active Substance: OLANZAPINE
     Dosage: 20 MILLIGRAM, QD
     Route: 048
  9. PALIPERIDONE PALMITATE [Suspect]
     Active Substance: PALIPERIDONE PALMITATE
     Indication: SCHIZOPHRENIA
     Dosage: 100 MILLIGRAM, MONTHLY, LONG-ACTING INJECTION
     Route: 030

REACTIONS (1)
  - Drug ineffective [Unknown]
